FAERS Safety Report 13011246 (Version 2)
Quarter: 2017Q1

REPORT INFORMATION
  Report Type: Spontaneous
  Country: US (occurrence: US)
  Receive Date: 20161208
  Receipt Date: 20170112
  Transmission Date: 20170428
  Serious: Yes (Other)
  Sender: FDA-Public Use
  Company Number: US-AMGEN-USASP2016172346

PATIENT
  Age: 63 Year
  Sex: Female

DRUGS (13)
  1. NUCYNTA [Concomitant]
     Active Substance: TAPENTADOL HYDROCHLORIDE
     Dosage: 100 MG, UNK
  2. ATENOLOL. [Concomitant]
     Active Substance: ATENOLOL
     Dosage: 50 MG, UNK
  3. VENTOLIN HFA [Concomitant]
     Active Substance: ALBUTEROL SULFATE
     Dosage: UNK
  4. TRAZODONE [Concomitant]
     Active Substance: TRAZODONE HYDROCHLORIDE
     Dosage: 50 MG, UNK
  5. FENTANYL. [Concomitant]
     Active Substance: FENTANYL
     Dosage: 25 MUG, QH
  6. FOLIC [Concomitant]
     Active Substance: FOLIC ACID
     Dosage: 50 MG, UNK
  7. ENBREL [Suspect]
     Active Substance: ETANERCEPT
     Indication: RHEUMATOID ARTHRITIS
     Dosage: 50 MG, ONCE WEEKLY
     Route: 058
     Dates: start: 20160819
  8. BACLOFEN. [Concomitant]
     Active Substance: BACLOFEN
     Dosage: 10 MG, UNK
  9. ESTRADIOL. [Concomitant]
     Active Substance: ESTRADIOL
     Dosage: 0.05 MG, UNK
  10. FENTANYL. [Concomitant]
     Active Substance: FENTANYL
     Dosage: 50 MUG, QH
  11. NORVASC [Concomitant]
     Active Substance: AMLODIPINE BESYLATE
     Dosage: 5 MG, UNK
  12. HYDROCODONE BITARTRATE AND ACETAMINOPHEN [Concomitant]
     Active Substance: ACETAMINOPHEN\HYDROCODONE BITARTRATE
     Dosage: 5-325 MG
  13. ALPRAZOLAM. [Concomitant]
     Active Substance: ALPRAZOLAM
     Dosage: 1 MG, UNK

REACTIONS (8)
  - Spinal cord disorder [Not Recovered/Not Resolved]
  - Intervertebral disc protrusion [Not Recovered/Not Resolved]
  - Respiratory disorder [Unknown]
  - Localised infection [Unknown]
  - Peripheral swelling [Not Recovered/Not Resolved]
  - Myalgia [Not Recovered/Not Resolved]
  - Skin discolouration [Not Recovered/Not Resolved]
  - Nasopharyngitis [Unknown]

NARRATIVE: CASE EVENT DATE: 20161021
